FAERS Safety Report 21863285 (Version 1)
Quarter: 2023Q1

REPORT INFORMATION
  Report Type: Report from Study
  Country: JP (occurrence: JP)
  Receive Date: 20230115
  Receipt Date: 20230115
  Transmission Date: 20230418
  Serious: Yes (Death, Other)
  Sender: FDA-Public Use
  Company Number: JP-002147023-NVSJ2020JP013365

PATIENT
  Age: 58 Year
  Sex: Male
  Weight: 53 kg

DRUGS (30)
  1. KYMRIAH [Suspect]
     Active Substance: TISAGENLECLEUCEL
     Indication: Diffuse large B-cell lymphoma recurrent
     Dosage: 4.18X10^9
     Route: 041
     Dates: start: 20200218
  2. RITUXIMAB [Concomitant]
     Active Substance: RITUXIMAB
     Indication: Diffuse large B-cell lymphoma recurrent
     Dosage: R-CVP, NUMBER OF CYCLES:8
     Route: 065
     Dates: start: 20101015
  3. RITUXIMAB [Concomitant]
     Active Substance: RITUXIMAB
     Dosage: NUMBER OF CYCLES:3
     Route: 065
     Dates: start: 20110915
  4. RITUXIMAB [Concomitant]
     Active Substance: RITUXIMAB
     Dosage: BR, NUMBER OF CYCLES:6
     Route: 065
     Dates: start: 20130615
  5. RITUXIMAB [Concomitant]
     Active Substance: RITUXIMAB
     Dosage: BR, NUMBER OF CYCLES:6
     Route: 065
     Dates: start: 20151215
  6. RITUXIMAB [Concomitant]
     Active Substance: RITUXIMAB
     Dosage: R-CHOP, NUMBER OF CYCLES:6
     Route: 065
     Dates: start: 20170515
  7. RITUXIMAB [Concomitant]
     Active Substance: RITUXIMAB
     Dosage: NUMBER OF CYCLES:1
     Route: 065
     Dates: start: 20171215
  8. RITUXIMAB [Concomitant]
     Active Substance: RITUXIMAB
     Dosage: R-DA-EPOCH, NUMBER OF CYCLES:4
     Route: 065
     Dates: start: 20180115
  9. RITUXIMAB [Concomitant]
     Active Substance: RITUXIMAB
     Dosage: R-GDP, NUMBER OF CYCLES:6
     Route: 065
     Dates: start: 20190527
  10. RITUXIMAB [Concomitant]
     Active Substance: RITUXIMAB
     Dosage: NUMBER OF CYCLES:5
     Route: 065
     Dates: start: 20190924, end: 20200117
  11. RITUXIMAB [Concomitant]
     Active Substance: RITUXIMAB
     Dosage: UNK
     Route: 065
     Dates: start: 20200804, end: 20200901
  12. GEMCITABINE [Concomitant]
     Active Substance: GEMCITABINE
     Indication: Diffuse large B-cell lymphoma recurrent
     Dosage: R-GDP,NUMBER OF CYCLES:6
     Route: 065
     Dates: start: 20190527
  13. GEMCITABINE [Concomitant]
     Active Substance: GEMCITABINE
     Dosage: NUMBER OF CYCLES:5
     Route: 065
     Dates: start: 20190924, end: 20200117
  14. GEMCITABINE [Concomitant]
     Active Substance: GEMCITABINE
     Dosage: UNK
     Route: 065
  15. CARBOPLATIN [Concomitant]
     Active Substance: CARBOPLATIN
     Indication: Diffuse large B-cell lymphoma recurrent
     Dosage: DEVIC, NUMBER OF CYCLES:1
     Route: 065
     Dates: start: 20171215
  16. CARBOPLATIN [Concomitant]
     Active Substance: CARBOPLATIN
     Dosage: NUMBER OF CYCLES:5
     Route: 065
     Dates: start: 20190924, end: 20200117
  17. CARBOPLATIN [Concomitant]
     Active Substance: CARBOPLATIN
     Dosage: UNK
     Route: 065
     Dates: start: 20200804, end: 20200901
  18. DEXAMETHASONE [Concomitant]
     Active Substance: DEXAMETHASONE
     Indication: Diffuse large B-cell lymphoma recurrent
     Dosage: DEVIC, NUMBER OF CYCLES:1
     Route: 065
     Dates: start: 20171215
  19. DEXAMETHASONE [Concomitant]
     Active Substance: DEXAMETHASONE
     Dosage: R-GDP, NUMBER OF CYCLES:6
     Route: 065
     Dates: start: 20190527
  20. DEXAMETHASONE [Concomitant]
     Active Substance: DEXAMETHASONE
     Dosage: UNK
     Route: 065
  21. BENDAMUSTINE [Concomitant]
     Active Substance: BENDAMUSTINE
     Indication: Lymphodepletion
     Dosage: BR, NUMBER OF CYCLES:6
     Route: 065
     Dates: start: 20130615
  22. BENDAMUSTINE [Concomitant]
     Active Substance: BENDAMUSTINE
     Dosage: BR, NUMBER OF CYCLES:6
     Route: 065
     Dates: start: 20151215
  23. BENDAMUSTINE [Concomitant]
     Active Substance: BENDAMUSTINE
     Dosage: 180 MG/M2
     Route: 065
     Dates: start: 20200214
  24. IFOSFAMIDE [Concomitant]
     Active Substance: IFOSFAMIDE
     Indication: Diffuse large B-cell lymphoma recurrent
     Dosage: DEVIC, NUMBER OF CYCLES:1
     Route: 065
     Dates: start: 20171215
  25. IFOSFAMIDE [Concomitant]
     Active Substance: IFOSFAMIDE
     Dosage: UNK
     Route: 065
     Dates: start: 20200804, end: 20200901
  26. ETOPOSIDE [Concomitant]
     Active Substance: ETOPOSIDE
     Indication: Diffuse large B-cell lymphoma recurrent
     Dosage: DEVIC, NUMBER OF CYCLES:1
     Route: 065
     Dates: start: 20171215
  27. ETOPOSIDE [Concomitant]
     Active Substance: ETOPOSIDE
     Dosage: R-DA-EPOCH, NUMBER OF CYCLES:4
     Route: 065
     Dates: start: 20180115
  28. ETOPOSIDE [Concomitant]
     Active Substance: ETOPOSIDE
     Dosage: NUMBER OF CYCLES:1
     Route: 065
     Dates: start: 20180415
  29. ETOPOSIDE [Concomitant]
     Active Substance: ETOPOSIDE
     Dosage: NUMBER OF CYCLES:1
     Route: 065
     Dates: start: 20180915, end: 20180915
  30. ETOPOSIDE [Concomitant]
     Active Substance: ETOPOSIDE
     Dosage: UNK
     Route: 065
     Dates: start: 20200804, end: 20200901

REACTIONS (10)
  - Diffuse large B-cell lymphoma recurrent [Fatal]
  - Malignant neoplasm progression [Fatal]
  - Platelet count decreased [Unknown]
  - White blood cell count decreased [Unknown]
  - Cytokine release syndrome [Recovered/Resolved]
  - Pyrexia [Unknown]
  - Hypogammaglobulinaemia [Not Recovered/Not Resolved]
  - Klebsiella infection [Unknown]
  - Renal disorder [Not Recovered/Not Resolved]
  - Concomitant disease aggravated [Not Recovered/Not Resolved]

NARRATIVE: CASE EVENT DATE: 20200218
